FAERS Safety Report 4576378-5 (Version None)
Quarter: 2005Q1

REPORT INFORMATION
  Report Type: 
  Country: None (occurrence: None)
  Receive Date: 20050207
  Receipt Date: 20050125
  Transmission Date: 20050727
  Serious: Yes (Life-Threatening, Hospitalization)
  Sender: FDA-Public Use
  Company Number: 2004097561

PATIENT
  Age: 95 Year
  Sex: Female

DRUGS (9)
  1. CELEBREX [Suspect]
     Indication: OSTEOARTHRITIS
     Dosage: 200 MG (200 MG 1 IN 1 D, ORAL)
     Route: 048
     Dates: start: 20010111, end: 20011224
  2. ACETYLSALICYLIC ACID SRT [Concomitant]
  3. RAMIPRIL [Concomitant]
  4. FUROSEMIDE                (FUROSEMIDE) [Concomitant]
  5. METOPROLOL TARTRATE [Concomitant]
  6. OXAZEPAM [Concomitant]
  7. NITROGLYCERIN [Concomitant]
  8. AMLODIPINE BESYLATE [Concomitant]
  9. SENNA FRUIT (SENNA FRUIT) [Concomitant]

REACTIONS (3)
  - BUNDLE BRANCH BLOCK RIGHT [None]
  - DYSPNOEA [None]
  - MYOCARDIAL INFARCTION [None]
